FAERS Safety Report 17122865 (Version 1)
Quarter: 2019Q4

REPORT INFORMATION
  Report Type: Spontaneous
  Country: US (occurrence: US)
  Receive Date: 20191114
  Receipt Date: 20191114
  Transmission Date: 20200122
  Serious: No
  Sender: FDA-Public Use
  Company Number: None

PATIENT
  Age: 73 Year
  Sex: Male

DRUGS (1)
  1. ZYTIGA [Suspect]
     Active Substance: ABIRATERONE ACETATE
     Route: 048
     Dates: start: 201910

REACTIONS (4)
  - Prostatic specific antigen decreased [None]
  - Fatigue [None]
  - Disease progression [None]
  - Penile neoplasm [None]

NARRATIVE: CASE EVENT DATE: 20191022
